FAERS Safety Report 14752630 (Version 2)
Quarter: 2018Q2

REPORT INFORMATION
  Report Type: Spontaneous
  Country: IT (occurrence: IT)
  Receive Date: 20180412
  Receipt Date: 20180620
  Transmission Date: 20180711
  Serious: Yes (Hospitalization)
  Sender: FDA-Public Use
  Company Number: IT-ROCHE-2103939

PATIENT
  Age: 74 Year
  Sex: Male

DRUGS (8)
  1. PRADAXA [Suspect]
     Active Substance: DABIGATRAN ETEXILATE MESYLATE
     Indication: THROMBOSIS PROPHYLAXIS
     Route: 048
     Dates: start: 20170101, end: 20170722
  2. PANTORC [Concomitant]
     Active Substance: PANTOPRAZOLE SODIUM
  3. TARGIN [Concomitant]
     Active Substance: NALOXONE HYDROCHLORIDE\OXYCODONE HYDROCHLORIDE
  4. ARIXTRA [Concomitant]
     Active Substance: FONDAPARINUX SODIUM
  5. DELTACORTENE [Concomitant]
     Active Substance: PREDNISONE
  6. CAPECITABINE. [Suspect]
     Active Substance: CAPECITABINE
     Indication: COLON CANCER
     Route: 048
     Dates: start: 20170101, end: 20170722
  7. SIVASTIN [Concomitant]
     Active Substance: SIMVASTATIN
  8. GUTRON [Concomitant]
     Active Substance: MIDODRINE

REACTIONS (4)
  - Faeces pale [Unknown]
  - Anaemia [Unknown]
  - Asthenia [Unknown]
  - Diarrhoea [Unknown]

NARRATIVE: CASE EVENT DATE: 20170712
